FAERS Safety Report 4998454-5 (Version None)
Quarter: 2006Q2

REPORT INFORMATION
  Report Type: 
  Country: None (occurrence: None)
  Receive Date: 20060508
  Receipt Date: 20060426
  Transmission Date: 20061013
  Serious: Yes (Hospitalization)
  Sender: FDA-Public Use
  Company Number: 2006056213

PATIENT
  Age: 26 Year
  Sex: Male
  Weight: 75 kg

DRUGS (3)
  1. LYRICA [Suspect]
     Indication: NEURALGIA
     Dosage: 75 MG (1 IN 1 D) ORAL
     Route: 048
     Dates: start: 20060308, end: 20060310
  2. CO-CODAMOL                     (CODEINE PHOSPHATE, PARACETAMOL) [Concomitant]
  3. TRAMADOL HCL [Concomitant]

REACTIONS (2)
  - BODY TEMPERATURE INCREASED [None]
  - ORAL MUCOSAL BLISTERING [None]
